FAERS Safety Report 16351582 (Version 1)
Quarter: 2019Q2

REPORT INFORMATION
  Report Type: Report from Study
  Country: None (occurrence: CA)
  Receive Date: 20190524
  Receipt Date: 20190524
  Transmission Date: 20190711
  Serious: Yes (Hospitalization)
  Sender: FDA-Public Use
  Company Number: CA-ABBVIE-19K-028-2795477-00

PATIENT
  Age: 54 Year
  Sex: Female

DRUGS (2)
  1. IMODIUM [Concomitant]
     Active Substance: LOPERAMIDE HYDROCHLORIDE
     Indication: CROHN^S DISEASE
     Route: 048
  2. HUMIRA [Suspect]
     Active Substance: ADALIMUMAB
     Indication: CROHN^S DISEASE
     Route: 058
     Dates: start: 20080729

REACTIONS (3)
  - Pain of skin [Unknown]
  - Acne [Unknown]
  - Skin induration [Unknown]

NARRATIVE: CASE EVENT DATE: 20190516
